FAERS Safety Report 6847579-8 (Version None)
Quarter: 2010Q3

REPORT INFORMATION
  Report Type: 
  Country: None (occurrence: None)
  Receive Date: 20100716
  Receipt Date: 20100708
  Transmission Date: 20110219
  Serious: Yes (Other)
  Sender: FDA-Public Use
  Company Number: FR-KINGPHARMUSA00001-K201000864

PATIENT
  Sex: Male
  Weight: 108.84 kg

DRUGS (3)
  1. ALTACE [Suspect]
     Indication: DIABETES MELLITUS
     Dosage: 5 MG, QD
     Route: 048
     Dates: start: 20090101
  2. LEVAQUIN [Suspect]
     Indication: LOCALISED INFECTION
     Dosage: 500 MG, BID
     Route: 048
     Dates: start: 20100602, end: 20100606
  3. INSULIN DETEMIR [Suspect]
     Indication: DIABETES MELLITUS
     Dosage: UNK, DAILY
     Route: 058
     Dates: start: 20100101

REACTIONS (3)
  - BLOOD GLUCOSE INCREASED [None]
  - PAIN IN EXTREMITY [None]
  - TENDON RUPTURE [None]
